FAERS Safety Report 6215174-X (Version None)
Quarter: 2009Q2

REPORT INFORMATION
  Report Type: 
  Country: None (occurrence: None)
  Receive Date: 20090601
  Receipt Date: 20081031
  Transmission Date: 20091009
  Serious: Yes (Hospitalization)
  Sender: FDA-Public Use
  Company Number: 280888

PATIENT
  Age: 52 Year
  Sex: Female
  Weight: 68.9 kg

DRUGS (12)
  1. ACTIVELLA [Suspect]
     Indication: DRUG USE FOR UNKNOWN INDICATION
     Dates: start: 20010401, end: 20010501
  2. PROVERA [Suspect]
     Indication: UTERINE HAEMORRHAGE
     Dates: end: 19990101
  3. PREMPRO [Suspect]
     Indication: MENOPAUSAL SYMPTOMS
     Dosage: 0.625/2,5MG
     Dates: start: 20000801, end: 20010201
  4. PREMPRO [Suspect]
     Indication: MENOPAUSAL SYMPTOMS
     Dosage: 0.625/2,5MG
     Dates: start: 20010201, end: 20010401
  5. PREMPRO [Suspect]
     Indication: MENOPAUSAL SYMPTOMS
     Dosage: 0.625/2,5MG
     Dates: start: 20020401, end: 20030401
  6. ORTHO-PREFEST(ESTRADIOL, NORGESTIMATE) [Suspect]
     Indication: MENOPAUSAL SYMPTOMS
     Dates: start: 20010501, end: 20010901
  7. FEMHRT [Suspect]
     Indication: MENOPAUSAL SYMPTOMS
     Dates: start: 20010901, end: 20020401
  8. NORVASC /00972401/ (AMLODIPINE) [Concomitant]
  9. VYTORIN [Concomitant]
  10. XANAX [Concomitant]
  11. PERCOCET /00446701/ (OXYCODONE HYDROCHLORIDE, OXYCODONE TEREPHTHALATE, [Concomitant]
  12. ASPIRIN [Concomitant]

REACTIONS (1)
  - BREAST CANCER [None]
